FAERS Safety Report 19310696 (Version 2)
Quarter: 2021Q2

REPORT INFORMATION
  Report Type: Report from Study
  Country: US (occurrence: US)
  Receive Date: 20210526
  Receipt Date: 20210603
  Transmission Date: 20210717
  Serious: Yes (Hospitalization)
  Sender: FDA-Public Use
  Company Number: US-JNJFOC-20210531585

PATIENT
  Age: 69 Year
  Sex: Female
  Weight: 81.8 kg

DRUGS (4)
  1. ADEMPAS [Concomitant]
     Active Substance: RIOCIGUAT
  2. AMLODIPINE [Concomitant]
     Active Substance: AMLODIPINE BESYLATE
  3. SELEXIPAG [Suspect]
     Active Substance: SELEXIPAG
     Indication: PULMONARY ARTERIAL HYPERTENSION
     Dosage: UPTRAVI 600 MCG ORALLY 2 TIMES DAILY
     Route: 048
  4. OPSUMIT [Suspect]
     Active Substance: MACITENTAN
     Indication: PULMONARY ARTERIAL HYPERTENSION
     Route: 048
     Dates: start: 20210209

REACTIONS (1)
  - COVID-19 [Unknown]
